FAERS Safety Report 16085880 (Version 2)
Quarter: 2019Q2

REPORT INFORMATION
  Report Type: Report from Study
  Country: CO (occurrence: CO)
  Receive Date: 20190318
  Receipt Date: 20190501
  Transmission Date: 20190711
  Serious: Yes (Hospitalization)
  Sender: FDA-Public Use
  Company Number: PHHY2019CO059436

PATIENT
  Age: 65 Year
  Sex: Female

DRUGS (2)
  1. REVOLADE [Suspect]
     Active Substance: ELTROMBOPAG
     Dosage: 25 MG, EVERY 8 HOURS
     Route: 048
  2. REVOLADE [Suspect]
     Active Substance: ELTROMBOPAG
     Indication: IMMUNE THROMBOCYTOPENIC PURPURA
     Dosage: 75 MG, QD
     Route: 048
     Dates: start: 20190225

REACTIONS (5)
  - Tuberculosis [Not Recovered/Not Resolved]
  - Platelet count decreased [Unknown]
  - Inappropriate schedule of product administration [Unknown]
  - Eye injury [Unknown]
  - Eye haematoma [Unknown]

NARRATIVE: CASE EVENT DATE: 201903
